FAERS Safety Report 22356446 (Version 11)
Quarter: 2023Q4

REPORT INFORMATION
  Report Type: Report from Study
  Country: US (occurrence: US)
  Receive Date: 20230523
  Receipt Date: 20231221
  Transmission Date: 20240109
  Serious: No
  Sender: FDA-Public Use
  Company Number: US-002147023-NVSC2023US115314

PATIENT
  Sex: Female

DRUGS (5)
  1. KESIMPTA [Suspect]
     Active Substance: OFATUMUMAB
     Indication: Multiple sclerosis
     Dosage: 20 MG, QMO
     Route: 058
  2. KESIMPTA [Suspect]
     Active Substance: OFATUMUMAB
     Dosage: 20 MG, QMO
     Route: 058
     Dates: start: 20230512
  3. KESIMPTA [Suspect]
     Active Substance: OFATUMUMAB
     Dosage: 20 MG (0.9 ML MONTHLY)
     Route: 058
     Dates: start: 202305
  4. BEMADRYL [Concomitant]
     Indication: Premedication
     Dosage: UNK
     Route: 065
  5. IBUPROFEN [Concomitant]
     Active Substance: IBUPROFEN
     Indication: Premedication
     Dosage: UNK
     Route: 065

REACTIONS (13)
  - Alopecia [Unknown]
  - Stress [Unknown]
  - Neck pain [Unknown]
  - Arthralgia [Recovered/Resolved]
  - Peroneal nerve palsy [Recovered/Resolved]
  - Condition aggravated [Recovered/Resolved]
  - Nausea [Unknown]
  - Vomiting [Unknown]
  - Diarrhoea [Unknown]
  - Cold sweat [Unknown]
  - Injection site pain [Unknown]
  - Injection site bruising [Unknown]
  - Therapeutic response shortened [Recovered/Resolved]
